FAERS Safety Report 17458704 (Version 2)
Quarter: 2020Q2

REPORT INFORMATION
  Report Type: Report from Study
  Country: US (occurrence: US)
  Receive Date: 20200225
  Receipt Date: 20200402
  Transmission Date: 20200713
  Serious: Yes (Hospitalization)
  Sender: FDA-Public Use
  Company Number: US-ACTELION-A-NJ2018-178556

PATIENT
  Age: 80 Year
  Sex: Female
  Weight: 62.13 kg

DRUGS (3)
  1. OPSUMIT [Suspect]
     Active Substance: MACITENTAN
     Dosage: 10 MG, QD
     Route: 048
  2. OPSUMIT [Suspect]
     Active Substance: MACITENTAN
     Indication: PULMONARY ARTERIAL HYPERTENSION
     Dosage: 10 MG, QD
     Route: 048
  3. ORENITRAM [Suspect]
     Active Substance: TREPROSTINIL
     Indication: PRODUCT USED FOR UNKNOWN INDICATION
     Route: 065

REACTIONS (8)
  - Diarrhoea [Unknown]
  - Hypotension [Unknown]
  - Hospice care [Unknown]
  - Dyspnoea [Unknown]
  - Dizziness [Unknown]
  - Oxygen saturation decreased [Unknown]
  - Pulmonary hypertension [Unknown]
  - Hospitalisation [Unknown]

NARRATIVE: CASE EVENT DATE: 201901
